FAERS Safety Report 10710897 (Version 1)
Quarter: 2015Q1

REPORT INFORMATION
  Report Type: Spontaneous
  Country: FR (occurrence: None)
  Receive Date: 20150112
  Receipt Date: 20150112
  Transmission Date: 20150721
  Serious: Yes (Death, Other)
  Sender: FDA-Public Use
  Company Number: FRA-SPN-2007012

PATIENT
  Age: 22 Day
  Sex: Male

DRUGS (2)
  1. AMMONUL -SODIUM PHENYLACETATE /SODIUM BENZOATE [Concomitant]
  2. CARBAGLU [Suspect]
     Active Substance: CARGLUMIC ACID
     Indication: HYPERAMMONAEMIA
     Route: 048
     Dates: start: 20070831, end: 20071109

REACTIONS (9)
  - Drug ineffective [None]
  - Decreased appetite [None]
  - Abdominal distension [None]
  - Hypotonia [None]
  - Necrotising colitis [None]
  - Vomiting [None]
  - Shock [None]
  - Hypotension [None]
  - Tachycardia [None]

NARRATIVE: CASE EVENT DATE: 20070911
